FAERS Safety Report 23154463 (Version 1)
Quarter: 2023Q4

REPORT INFORMATION
  Report Type: Spontaneous
  Country: US (occurrence: None)
  Receive Date: 20231107
  Receipt Date: 20231107
  Transmission Date: 20240110
  Serious: Yes (Hospitalization, Disabling)
  Sender: FDA-Public Use
  Company Number: None

PATIENT
  Age: 58 Year
  Sex: Female
  Weight: 58.5 kg

DRUGS (6)
  1. OZEMPIC [Suspect]
     Active Substance: SEMAGLUTIDE
     Indication: Off label use
     Dosage: OTHER QUANTITY : 3 INJECTION(S);?OTHER FREQUENCY : EVERY 7 DAYS;?
     Route: 058
     Dates: start: 20230623, end: 20230728
  2. NOVOLOG [Concomitant]
     Active Substance: INSULIN ASPART
  3. SYNTHROID [Concomitant]
     Active Substance: LEVOTHYROXINE SODIUM
  4. BUPROPION [Concomitant]
     Active Substance: BUPROPION
  5. BUDESONIDE [Concomitant]
     Active Substance: BUDESONIDE
  6. CHOLESTYRAMINE [Concomitant]
     Active Substance: CHOLESTYRAMINE

REACTIONS (5)
  - Diarrhoea [None]
  - Muscle spasms [None]
  - Weight decreased [None]
  - Fatigue [None]
  - Illness [None]

NARRATIVE: CASE EVENT DATE: 20230729
